FAERS Safety Report 20329358 (Version 1)
Quarter: 2022Q1

REPORT INFORMATION
  Report Type: Spontaneous
  Country: CN (occurrence: CN)
  Receive Date: 20220112
  Receipt Date: 20220112
  Transmission Date: 20220424
  Serious: Yes (Other)
  Sender: FDA-Public Use
  Company Number: CN-PFIZER INC-202101883173

PATIENT
  Age: 69 Year
  Sex: Female
  Weight: 34 kg

DRUGS (8)
  1. EPIRUBICIN [Suspect]
     Active Substance: EPIRUBICIN
     Indication: Diffuse large B-cell lymphoma
     Dosage: 88 MG, 1X/DAY
     Route: 041
     Dates: start: 20211030, end: 20211030
  2. MABTHERA [Suspect]
     Active Substance: RITUXIMAB
     Indication: Diffuse large B-cell lymphoma
     Dosage: 0.5 G, 1X/DAY
     Route: 041
     Dates: start: 20211029, end: 20211029
  3. CYCLOPHOSPHAMIDE [Suspect]
     Active Substance: CYCLOPHOSPHAMIDE
     Indication: Diffuse large B-cell lymphoma
     Dosage: 0.96 G, 1X/DAY
     Route: 041
     Dates: start: 20211030, end: 20211030
  4. VINDESINE SULFATE [Suspect]
     Active Substance: VINDESINE SULFATE
     Indication: Diffuse large B-cell lymphoma
     Dosage: 3 MG, 1X/DAY
     Route: 042
     Dates: start: 20211030, end: 20211030
  5. SODIUM CHLORIDE [Concomitant]
     Active Substance: SODIUM CHLORIDE
     Indication: Vehicle solution use
     Dosage: 450 ML, 1X/DAY
     Route: 041
     Dates: start: 20211029, end: 20211029
  6. SODIUM CHLORIDE [Concomitant]
     Active Substance: SODIUM CHLORIDE
     Dosage: 100 ML, 1X/DAY
     Route: 041
     Dates: start: 20211030, end: 20211030
  7. SODIUM CHLORIDE [Concomitant]
     Active Substance: SODIUM CHLORIDE
     Dosage: 100 ML, 1X/DAY
     Route: 041
     Dates: start: 20211030, end: 20211030
  8. SODIUM CHLORIDE [Concomitant]
     Active Substance: SODIUM CHLORIDE
     Dosage: 40 ML, 1X/DAY
     Route: 042
     Dates: start: 20211030, end: 20211030

REACTIONS (4)
  - Cytopenia [Recovering/Resolving]
  - White blood cell count decreased [Recovering/Resolving]
  - Neutrophil count decreased [Recovering/Resolving]
  - Haemoglobin decreased [Recovering/Resolving]

NARRATIVE: CASE EVENT DATE: 20211109
